FAERS Safety Report 7293279-2 (Version None)
Quarter: 2011Q1

REPORT INFORMATION
  Report Type: 
  Country: None (occurrence: None)
  Receive Date: 20110215
  Receipt Date: 20110201
  Transmission Date: 20110831
  Serious: Yes (Hospitalization, Other)
  Sender: FDA-Public Use
  Company Number: GB-WATSON-2011-01579

PATIENT
  Age: 50 Year
  Sex: Male

DRUGS (8)
  1. ARIPIPRAZOLE [Suspect]
     Indication: SCHIZOPHRENIA, PARANOID TYPE
     Dosage: 15 MG, DAILY
  2. ARIPIPRAZOLE [Suspect]
     Dosage: 20 MG, DAILY
  3. METFORMIN HCL [Suspect]
     Indication: DIABETES MELLITUS
     Dosage: 1 G, Q12H
     Route: 048
  4. GLICLAZIDE [Suspect]
     Indication: DIABETES MELLITUS
     Dosage: 30 MG, DAILY
  5. METFORMIN HCL [Suspect]
     Dosage: 500 MG, BID
     Route: 048
  6. OLANZAPINE [Suspect]
     Dosage: 20 MG, DAILY
  7. RISPERIDONE [Suspect]
     Indication: SCHIZOPHRENIA, PARANOID TYPE
     Dosage: 6 MG, DAILY
     Route: 048
  8. OLANZAPINE [Suspect]
     Indication: SCHIZOPHRENIA, PARANOID TYPE
     Dosage: 25 MG, DAILY

REACTIONS (9)
  - TREATMENT NONCOMPLIANCE [None]
  - HYPOGLYCAEMIA [None]
  - DRUG INTERACTION [None]
  - URINARY INCONTINENCE [None]
  - CONDITION AGGRAVATED [None]
  - DRUG WITHDRAWAL SYNDROME [None]
  - MENTAL DISORDER [None]
  - WEIGHT DECREASED [None]
  - OVERWEIGHT [None]
